FAERS Safety Report 20738097 (Version 1)
Quarter: 2022Q2

REPORT INFORMATION
  Report Type: Spontaneous
  Country: TZ (occurrence: TZ)
  Receive Date: 20220422
  Receipt Date: 20220422
  Transmission Date: 20220721
  Serious: Yes (Other)
  Sender: FDA-Public Use
  Company Number: TZ-CIPLA LTD.-2022TZ02590

PATIENT

DRUGS (3)
  1. TENOFOVIR [Suspect]
     Active Substance: TENOFOVIR
     Indication: HIV infection WHO clinical stage III
     Dosage: UNK
     Route: 065
     Dates: start: 20100423
  2. EFAVIRENZ [Suspect]
     Active Substance: EFAVIRENZ
     Indication: HIV infection WHO clinical stage III
     Dosage: UNK
     Route: 065
  3. EMTRICITABINE [Suspect]
     Active Substance: EMTRICITABINE
     Indication: HIV infection WHO clinical stage III
     Dosage: UNK
     Route: 065
     Dates: start: 20100423

REACTIONS (1)
  - Virologic failure [Unknown]
